FAERS Safety Report 12743496 (Version 1)
Quarter: 2016Q3

REPORT INFORMATION
  Report Type: Spontaneous
  Country: BR (occurrence: BR)
  Receive Date: 20160914
  Receipt Date: 20160914
  Transmission Date: 20161109
  Serious: Yes (Other)
  Sender: FDA-Public Use
  Company Number: BR-BAYER-2016-019469

PATIENT
  Age: 28 Year
  Sex: Female

DRUGS (2)
  1. QLAIRA [Suspect]
     Active Substance: DIENOGEST\ESTRADIOL VALERATE
     Indication: CONTRACEPTION
     Dosage: 1 DF, QD
     Route: 048
     Dates: start: 20120808, end: 20151227
  2. T3 [Concomitant]
     Active Substance: LIOTHYRONINE SODIUM
     Indication: THYROID DISORDER
     Dosage: 1 DF, QD
     Route: 048
     Dates: start: 2012

REACTIONS (6)
  - Placental disorder [None]
  - Pregnancy on oral contraceptive [Recovered/Resolved]
  - Premature delivery [None]
  - Drug ineffective [None]
  - Menstruation delayed [None]
  - Amniotic fluid volume decreased [None]

NARRATIVE: CASE EVENT DATE: 201511
